FAERS Safety Report 12332418 (Version 2)
Quarter: 2017Q2

REPORT INFORMATION
  Report Type: Spontaneous
  Country: US (occurrence: US)
  Receive Date: 20160504
  Receipt Date: 20170501
  Transmission Date: 20170830
  Serious: No
  Sender: FDA-Public Use
  Company Number: US-ROCHE-1663172

PATIENT
  Sex: Male

DRUGS (7)
  1. GABAPENTIN. [Concomitant]
     Active Substance: GABAPENTIN
  2. ESBRIET [Suspect]
     Active Substance: PIRFENIDONE
     Route: 048
  3. OMEGA-6 [Concomitant]
  4. FISH OIL [Concomitant]
     Active Substance: FISH OIL
  5. ESBRIET [Suspect]
     Active Substance: PIRFENIDONE
     Indication: IDIOPATHIC PULMONARY FIBROSIS
     Route: 048
     Dates: start: 20150217
  6. OMEGA-3 ACIDS [Concomitant]
     Active Substance: OMEGA-3 FATTY ACIDS
  7. ATORVASTATIN CALCIUM. [Concomitant]
     Active Substance: ATORVASTATIN CALCIUM

REACTIONS (2)
  - Chest discomfort [Not Recovered/Not Resolved]
  - Diverticulitis [Unknown]
